FAERS Safety Report 8485282-1 (Version None)
Quarter: 2012Q2

REPORT INFORMATION
  Report Type: 
  Country: None (occurrence: None)
  Receive Date: 20120627
  Receipt Date: 20120627
  Transmission Date: 20120825
  Serious: No
  Sender: FDA-Public Use
  Company Number: None

PATIENT
  Age: 44 Year
  Sex: Female

DRUGS (1)
  1. NATURAL PAPYA CREME [Suspect]
     Dosage: 50 GM TUBE TOPICAL
     Route: 061

REACTIONS (2)
  - SKIN DISCOLOURATION [None]
  - SKIN ATROPHY [None]
